FAERS Safety Report 8840613 (Version 8)
Quarter: 2016Q3

REPORT INFORMATION
  Report Type: Spontaneous
  Country: PR (occurrence: US)
  Receive Date: 20121015
  Receipt Date: 20160809
  Transmission Date: 20161109
  Serious: Yes (Hospitalization, Disabling, Other)
  Sender: FDA-Public Use
  Company Number: US-009507513-1210USA004463

PATIENT
  Sex: Female

DRUGS (4)
  1. FOSAMAX [Suspect]
     Active Substance: ALENDRONATE SODIUM
     Indication: OSTEOPOROSIS
     Dosage: 70 MG, UNKNOWN
     Route: 048
     Dates: start: 20020901, end: 200802
  2. FOSAMAX [Suspect]
     Active Substance: ALENDRONATE SODIUM
     Dosage: 70 MG, UNK
     Route: 048
     Dates: start: 200804, end: 201109
  3. ALENDRONATE SODIUM. [Suspect]
     Active Substance: ALENDRONATE SODIUM
     Indication: OSTEOPOROSIS
     Dosage: 70 MG, UNKNOWN
     Route: 048
     Dates: start: 200804, end: 201109
  4. CALTRATE [Concomitant]
     Active Substance: CALCIUM CARBONATE
     Dosage: UNK, QD
     Route: 065
     Dates: start: 2000

REACTIONS (20)
  - Hip fracture [Not Recovered/Not Resolved]
  - Bone infarction [Unknown]
  - Gastrooesophageal reflux disease [Unknown]
  - Neuropathy peripheral [Unknown]
  - Peripheral vascular disorder [Unknown]
  - Osteoporosis [Not Recovered/Not Resolved]
  - Hepatic cancer [Unknown]
  - Bone density increased [Unknown]
  - Osteopenia [Unknown]
  - Calcium deficiency [Unknown]
  - Gastritis [Unknown]
  - Internal fixation of fracture [Unknown]
  - Hypothyroidism [Unknown]
  - Rheumatoid arthritis [Unknown]
  - Femur fracture [Not Recovered/Not Resolved]
  - Breast cancer [Unknown]
  - Hypertensive heart disease [Unknown]
  - Arteriosclerosis [Unknown]
  - Low turnover osteopathy [Not Recovered/Not Resolved]
  - Femur fracture [Not Recovered/Not Resolved]

NARRATIVE: CASE EVENT DATE: 2007
